FAERS Safety Report 14460417 (Version 1)
Quarter: 2018Q1

REPORT INFORMATION
  Report Type: Spontaneous
  Country: FR (occurrence: FR)
  Receive Date: 20180130
  Receipt Date: 20180130
  Transmission Date: 20180509
  Serious: Yes (Other)
  Sender: FDA-Public Use
  Company Number: FR-BAYER-2017-238475

PATIENT
  Age: 26 Year
  Sex: Female

DRUGS (1)
  1. JAYDESS [Suspect]
     Active Substance: LEVONORGESTREL
     Dosage: 14 MCG/24HR, CONT
     Route: 015
     Dates: start: 20150418

REACTIONS (7)
  - Ruptured ectopic pregnancy [None]
  - Drug ineffective [None]
  - Pelvic pain [None]
  - Ovarian cyst ruptured [None]
  - Pelvic fluid collection [None]
  - Ectopic pregnancy with contraceptive device [None]
  - Haematosalpinx [None]

NARRATIVE: CASE EVENT DATE: 2017
